FAERS Safety Report 7332720 (Version 3)
Quarter: 2012Q4

REPORT INFORMATION
  Report Type: 
  Country: US (occurrence: US)
  Receive Date: 20100326
  Receipt Date: 20120925
  Transmission Date: 20130627
  Serious: No
  Sender: FDA-Public Use
  Company Number: US-BAYER-201014828NA

PATIENT
  Sex: Female

DRUGS (1)
  1. MIRENA [Suspect]
     Dosage: FREQUENCY: CONTINUOUS
     Route: 015

REACTIONS (5)
  - Pregnancy with contraceptive device [Unknown]
  - Vomiting in pregnancy [Unknown]
  - Hyperphagia [Unknown]
  - Weight increased [Unknown]
  - Abdominal discomfort [Unknown]
